FAERS Safety Report 7350502-3 (Version None)
Quarter: 2011Q1

REPORT INFORMATION
  Report Type: 
  Country: None (occurrence: None)
  Receive Date: 20110314
  Receipt Date: 20110309
  Transmission Date: 20110831
  Serious: Yes (Other)
  Sender: FDA-Public Use
  Company Number: GB-PFIZER INC-2011052739

PATIENT
  Age: 56 Year

DRUGS (11)
  1. OLMESARTAN [Concomitant]
     Indication: HYPERTENSION
     Route: 048
  2. SUMATRIPTAN [Concomitant]
  3. VITAMIN D [Suspect]
  4. PARACETAMOL [Concomitant]
     Dosage: UNK
     Route: 048
  5. TOLTERODINE TARTRATE [Suspect]
     Indication: URINARY INCONTINENCE
     Dosage: 2 MG, 2X/DAY
     Route: 048
     Dates: start: 20101216, end: 20101224
  6. IBUPROFEN [Concomitant]
     Dosage: 5 %, AS NEEDED
     Route: 061
  7. SIMVASTATIN [Concomitant]
     Route: 048
  8. AMITRIPTYLINE [Concomitant]
  9. HYDROCHLOROTHIAZIDE [Concomitant]
  10. METFORMIN [Concomitant]
     Indication: DIABETES MELLITUS
     Route: 048
  11. COLECALCIFEROL [Concomitant]

REACTIONS (2)
  - SWELLING FACE [None]
  - OEDEMA PERIPHERAL [None]
